FAERS Safety Report 6715215-7 (Version None)
Quarter: 2010Q2

REPORT INFORMATION
  Report Type: 
  Country: None (occurrence: None)
  Receive Date: 20100507
  Receipt Date: 20100429
  Transmission Date: 20101027
  Serious: Yes (Hospitalization)
  Sender: FDA-Public Use
  Company Number: GB-JNJCH-2010010763

PATIENT
  Age: 47 Year
  Sex: Male
  Weight: 123.8 kg

DRUGS (5)
  1. CETIRIZINE HYDROCHLORIDE [Suspect]
     Indication: SEASONAL ALLERGY
     Dosage: TEXT:10MG
     Route: 048
     Dates: start: 20100207, end: 20100419
  2. CEFOXITIN [Concomitant]
     Indication: LOWER RESPIRATORY TRACT INFECTION
     Dosage: TEXT:500MG 3 / 1DAYS
     Route: 048
  3. IPRATROPIUM [Concomitant]
     Indication: ASTHMA
     Dosage: TEXT:4DF 1 / 1DAYS
     Route: 055
  4. MONTELUKAST SODIUM [Concomitant]
     Indication: ASTHMA
     Dosage: TEXT:10MG 1 / 1DAYS
     Route: 055
  5. SERETIDE [Concomitant]
     Indication: ASTHMA
     Dosage: TEXT:500UG
     Route: 055

REACTIONS (3)
  - ASTHMA [None]
  - CHEST DISCOMFORT [None]
  - WHEEZING [None]
